FAERS Safety Report 15551293 (Version 1)
Quarter: 2018Q4

REPORT INFORMATION
  Report Type: Report from Study
  Country: ES (occurrence: ES)
  Receive Date: 20181025
  Receipt Date: 20181025
  Transmission Date: 20190205
  Serious: Yes (Other)
  Sender: FDA-Public Use
  Company Number: ES-TEVA-2018-ES-968246

PATIENT
  Age: 85 Year
  Sex: Male

DRUGS (8)
  1. SINTROM [Interacting]
     Active Substance: ACENOCOUMAROL
     Indication: ATRIAL FIBRILLATION
     Dosage: SEG?N INR
     Route: 048
     Dates: start: 2017
  2. BETMIGA 50 [Concomitant]
     Dosage: 50 MILLIGRAM DAILY;
     Route: 048
  3. ESOMEPRAZOL (1172A) [Suspect]
     Active Substance: ESOMEPRAZOLE
     Indication: HIATUS HERNIA
     Dosage: 1 DOSAGE FORMS DAILY;
     Route: 048
     Dates: start: 2011
  4. MASDIL 60 [Concomitant]
     Dosage: 1/2-0-1/2
     Route: 048
  5. TORASEMIDA 2,5 [Concomitant]
     Dosage: 2.5 MILLIGRAM DAILY;
     Route: 048
  6. MOTILIUM [Concomitant]
     Active Substance: DOMPERIDONE
     Route: 048
  7. ENALAPRIL 5 MG COMPRIMIDO [Concomitant]
     Dosage: 5 MILLIGRAM DAILY;
     Route: 048
  8. TAMSULOSINA (2751A) [Concomitant]
     Dosage: 1 DOSAGE FORMS DAILY;
     Route: 048

REACTIONS (2)
  - Drug interaction [Unknown]
  - Iron deficiency anaemia [Unknown]

NARRATIVE: CASE EVENT DATE: 2017
